FAERS Safety Report 8849738 (Version 2)
Quarter: 2013Q3

REPORT INFORMATION
  Report Type: Spontaneous
  Country: US (occurrence: US)
  Receive Date: 20121019
  Receipt Date: 20130716
  Transmission Date: 20140515
  Serious: Yes (Disabling)
  Sender: FDA-Public Use
  Company Number: US-BRISTOL-MYERS SQUIBB COMPANY-16765422

PATIENT
  Age: 56 Year
  Sex: Male
  Weight: 68.93 kg

DRUGS (16)
  1. ABILIFY [Suspect]
     Indication: BIPOLAR DISORDER
     Dosage: 15MG:DC10-FB11,FB12-MY12:50MG/D;10MG,Q3D ON UNK DT?DOSE INC TO 20MG
     Dates: start: 201012
  2. HALDOL [Suspect]
     Dosage: DEC10-FB11,DOSE REDUCED FROM DC11-23MAY12 5MG
     Dates: start: 201012
  3. TEGRETOL [Suspect]
     Indication: BIPOLAR DISORDER
     Dosage: JUN12-JUL12:DOSE RAISED BY 200 MG EACH MNTH?2TABS
     Dates: start: 2007
  4. KLONOPIN [Suspect]
     Dosage: AT NT?1 TAB QD PRN?DOSE REDUCED FROM 4 MG TO 2 MG
  5. ALLOPURINOL [Concomitant]
  6. COREG [Concomitant]
  7. AVODART [Concomitant]
  8. UROXATRAL [Concomitant]
  9. VITAMIN C [Concomitant]
  10. FISH OIL [Concomitant]
  11. LISINOPRIL [Concomitant]
  12. CLONIDINE [Concomitant]
  13. NITROGLYCERIN PATCH [Concomitant]
  14. AMBIEN [Concomitant]
  15. LAMICTAL [Concomitant]
  16. TESTOSTERONE [Concomitant]
     Dosage: PATCH

REACTIONS (6)
  - Anorgasmia [Recovering/Resolving]
  - Erection increased [Unknown]
  - Feeling abnormal [Unknown]
  - Overdose [Unknown]
  - Blood testosterone decreased [Recovering/Resolving]
  - Affect lability [Unknown]
